FAERS Safety Report 14179516 (Version 1)
Quarter: 2017Q4

REPORT INFORMATION
  Report Type: Spontaneous
  Country: US (occurrence: US)
  Receive Date: 20171110
  Receipt Date: 20171110
  Transmission Date: 20180321
  Serious: No
  Sender: FDA-Public Use
  Company Number: US-009507513-1710USA013236

PATIENT
  Age: 66 Year
  Sex: Male

DRUGS (3)
  1. PIPERACILLIN AND TAZOBACTAM [Concomitant]
     Active Substance: PIPERACILLIN SODIUM\TAZOBACTAM SODIUM
  2. VANCOMYCIN [Concomitant]
     Active Substance: VANCOMYCIN
  3. INVANZ [Suspect]
     Active Substance: ERTAPENEM SODIUM
     Dosage: UNK, QD
     Route: 042

REACTIONS (1)
  - Product use in unapproved indication [Unknown]
